FAERS Safety Report 4330405-9 (Version None)
Quarter: 2004Q2

REPORT INFORMATION
  Report Type: 
  Country: None (occurrence: None)
  Receive Date: 20040401
  Receipt Date: 20040317
  Transmission Date: 20050107
  Serious: Yes (Hospitalization)
  Sender: FDA-Public Use
  Company Number: 2004UW04841

PATIENT
  Age: 72 Year
  Sex: Male

DRUGS (7)
  1. CRESTOR [Suspect]
     Dosage: 10 MG QD PO
     Route: 048
     Dates: start: 20031007, end: 20040304
  2. TENORMIN [Concomitant]
  3. MAVIK [Concomitant]
  4. ASPIRIN [Concomitant]
  5. NIACIN [Concomitant]
  6. BAYCOL [Concomitant]
  7. ZETIA [Concomitant]

REACTIONS (7)
  - APPENDICEAL ABSCESS [None]
  - APPENDIX DISORDER [None]
  - CARDIAC DISORDER [None]
  - CHOLECYSTITIS [None]
  - GASTROINTESTINAL GANGRENE [None]
  - PANCREATITIS [None]
  - RESPIRATORY DISORDER [None]
